FAERS Safety Report 22193121 (Version 1)
Quarter: 2023Q2

REPORT INFORMATION
  Report Type: Spontaneous
  Country: GR (occurrence: GR)
  Receive Date: 20230410
  Receipt Date: 20230410
  Transmission Date: 20230721
  Serious: Yes (Other)
  Sender: FDA-Public Use
  Company Number: GR-AMGEN-GRCSP2023057888

PATIENT
  Sex: Female

DRUGS (1)
  1. XGEVA [Suspect]
     Active Substance: DENOSUMAB
     Indication: Lung neoplasm malignant
     Dosage: UNK, QMO
     Route: 065

REACTIONS (3)
  - Lower limb fracture [Recovering/Resolving]
  - Tooth disorder [Not Recovered/Not Resolved]
  - Off label use [Unknown]
